FAERS Safety Report 4507809-4 (Version None)
Quarter: 2004Q4

REPORT INFORMATION
  Report Type: 
  Country: None (occurrence: None)
  Receive Date: 20041018
  Receipt Date: 20040826
  Transmission Date: 20050328
  Serious: No
  Sender: FDA-Public Use
  Company Number: 205122

PATIENT
  Age: 72 Year
  Sex: Female
  Weight: 55 kg

DRUGS (10)
  1. XOLAIR [Suspect]
     Indication: ASTHMA
     Dosage: 300MG, Q2W, SUBCUTANEOUS
     Route: 058
     Dates: start: 20031216, end: 20040720
  2. PREDNISONE [Concomitant]
  3. ATROVENT [Concomitant]
  4. XOPNEX (LEVALBUTEROL HYDROCHLORIDE) [Concomitant]
  5. INTAL [Concomitant]
  6. PULMICORT [Concomitant]
  7. OS-CAL (CALCUM CARBONATE) [Concomitant]
  8. ACTONEL [Concomitant]
  9. ACCOLATE [Concomitant]
  10. FLOVENT [Concomitant]

REACTIONS (2)
  - ANAEMIA [None]
  - BACK PAIN [None]
